FAERS Safety Report 14084680 (Version 2)
Quarter: 2017Q4

REPORT INFORMATION
  Report Type: Spontaneous
  Country: IN (occurrence: IN)
  Receive Date: 20171013
  Receipt Date: 20171229
  Transmission Date: 20180321
  Serious: Yes (Death)
  Sender: FDA-Public Use
  Company Number: IN-SUN PHARMACEUTICAL INDUSTRIES LTD-2017R1-152312

PATIENT
  Age: 38 Year
  Sex: Male

DRUGS (12)
  1. MEROPENEM. [Suspect]
     Active Substance: MEROPENEM
     Indication: RHINORRHOEA
     Dosage: UNK
     Route: 065
  2. VANCOMYCIN [Concomitant]
     Active Substance: VANCOMYCIN
     Indication: MENINGITIS
  3. MEROPENEM. [Suspect]
     Active Substance: MEROPENEM
     Indication: MENINGITIS
  4. HYDROCORTISONE. [Suspect]
     Active Substance: HYDROCORTISONE
     Indication: MENINGITIS
  5. VANCOMYCIN HYDROCHLORIDE. [Suspect]
     Active Substance: VANCOMYCIN HYDROCHLORIDE
     Indication: RHINORRHOEA
     Dosage: UNK
     Route: 037
  6. HYDROCORTISONE. [Suspect]
     Active Substance: HYDROCORTISONE
     Indication: RHINORRHOEA
     Dosage: 10 MG/M2, QD
     Route: 048
  7. VANCOMYCIN HYDROCHLORIDE. [Suspect]
     Active Substance: VANCOMYCIN HYDROCHLORIDE
     Indication: MENINGITIS
  8. DESMOPRESSIN [Concomitant]
     Active Substance: DESMOPRESSIN
     Indication: DIABETES INSIPIDUS
     Route: 058
  9. HYDROCORTISONE. [Suspect]
     Active Substance: HYDROCORTISONE
     Indication: MENINGITIS
  10. VANCOMYCIN [Concomitant]
     Active Substance: VANCOMYCIN
     Indication: RHINORRHOEA
     Route: 042
  11. HYDROCORTISONE. [Suspect]
     Active Substance: HYDROCORTISONE
     Indication: RHINORRHOEA
     Dosage: 50 MG, TID
     Route: 042
  12. THYROXINE [Concomitant]
     Active Substance: LEVOTHYROXINE
     Indication: PRODUCT USED FOR UNKNOWN INDICATION
     Route: 065

REACTIONS (5)
  - Aspergillus infection [Fatal]
  - Haemorrhagic infarction [Fatal]
  - Basilar artery thrombosis [Fatal]
  - Basilar artery aneurysm [Fatal]
  - Subarachnoid haemorrhage [Fatal]
